FAERS Safety Report 23900427 (Version 1)
Quarter: 2024Q2

REPORT INFORMATION
  Report Type: Spontaneous
  Country: US (occurrence: None)
  Receive Date: 20240526
  Receipt Date: 20240526
  Transmission Date: 20240716
  Serious: No
  Sender: FDA-Public Use
  Company Number: US-ROCHE-3440931

PATIENT
  Sex: Female
  Weight: 83.99 kg

DRUGS (1)
  1. OCREVUS [Suspect]
     Active Substance: OCRELIZUMAB
     Indication: Relapsing-remitting multiple sclerosis
     Dosage: 1ST TWO 300 MG OCREVUS INFUSIONS SEPARATED BY 2 WEEKS
     Route: 042
     Dates: start: 202304

REACTIONS (1)
  - Fall [Unknown]
